FAERS Safety Report 5520629-7 (Version None)
Quarter: 2007Q4

REPORT INFORMATION
  Report Type: 
  Country: None (occurrence: None)
  Receive Date: 20071119
  Receipt Date: 20071105
  Transmission Date: 20080405
  Serious: Yes (Other)
  Sender: FDA-Public Use
  Company Number: FR-PFIZER INC-2007093620

PATIENT
  Age: 52 Year
  Sex: Female

DRUGS (4)
  1. XALATAN [Suspect]
  2. CRESTOR [Concomitant]
  3. LEVOTHYROXINE SODIUM [Concomitant]
  4. INDAPAMIDE [Concomitant]

REACTIONS (7)
  - BLINDNESS TRANSIENT [None]
  - CORNEAL DISORDER [None]
  - CORNEAL OEDEMA [None]
  - EYE IRRITATION [None]
  - KERATITIS [None]
  - PARAESTHESIA [None]
  - SENSATION OF FOREIGN BODY [None]
